FAERS Safety Report 23298177 (Version 1)
Quarter: 2023Q4

REPORT INFORMATION
  Report Type: Other
  Country: JP (occurrence: JP)
  Receive Date: 20231214
  Receipt Date: 20231214
  Transmission Date: 20240110
  Serious: Yes (Life-Threatening)
  Sender: FDA-Public Use
  Company Number: JP-Merck Healthcare KGaA-2023492542

PATIENT
  Age: 35 Year
  Sex: Female

DRUGS (2)
  1. OVIDREL [Suspect]
     Active Substance: CHORIOGONADOTROPIN ALFA
     Indication: Assisted reproductive technology
     Route: 058
  2. PROGESTERONE [Concomitant]
     Active Substance: PROGESTERONE
     Indication: Controlled ovarian stimulation

REACTIONS (4)
  - Platelet count decreased [Recovered/Resolved]
  - Inflammation [Recovering/Resolving]
  - Pyrexia [Not Recovered/Not Resolved]
  - Abdominal distension [Recovering/Resolving]
